FAERS Safety Report 6895915-9 (Version None)
Quarter: 2010Q3

REPORT INFORMATION
  Report Type: 
  Country: None (occurrence: None)
  Receive Date: 20100802
  Receipt Date: 20100723
  Transmission Date: 20110219
  Serious: Yes (Hospitalization, Other)
  Sender: FDA-Public Use
  Company Number: HQWYE450115JUN04

PATIENT
  Sex: Female

DRUGS (3)
  1. PREMPRO [Suspect]
     Dosage: UNKNOWN
     Route: 048
  2. PREMARIN [Suspect]
  3. MEDROXYPROGESTERONE ACETATE [Suspect]
     Dosage: UNKNOWN
     Route: 048

REACTIONS (1)
  - BREAST CANCER [None]
